FAERS Safety Report 10903780 (Version 1)
Quarter: 2015Q1

REPORT INFORMATION
  Report Type: Spontaneous
  Country: FR (occurrence: FR)
  Receive Date: 20150311
  Receipt Date: 20150311
  Transmission Date: 20150721
  Serious: Yes (Hospitalization)
  Sender: FDA-Public Use
  Company Number: FR-ROCHE-1550185

PATIENT
  Age: 69 Year
  Sex: Male

DRUGS (19)
  1. ADVAGRAF [Suspect]
     Active Substance: TACROLIMUS
     Dosage: DOSE DECREASED
     Route: 048
     Dates: start: 20140222
  2. CELLCEPT [Concomitant]
     Active Substance: MYCOPHENOLATE MOFETIL\MYCOPHENOLATE MOFETIL HYDROCHLORIDE
     Route: 048
     Dates: start: 201501
  3. SERETIDE [Concomitant]
     Active Substance: FLUTICASONE FUROATE\SALMETEROL XINAFOATE
  4. IPRATROPIUM [Concomitant]
     Active Substance: IPRATROPIUM
  5. ROCEPHINE [Concomitant]
     Active Substance: CEFTRIAXONE SODIUM
     Indication: INFLUENZA
     Route: 065
  6. PREVISCAN (FRANCE) [Concomitant]
     Active Substance: FLUINDIONE
     Route: 065
  7. OMEPRAZOLE. [Concomitant]
     Active Substance: OMEPRAZOLE
     Route: 065
  8. ROVAMYCINE [Concomitant]
     Active Substance: SPIRAMYCIN
     Indication: INFLUENZA
     Route: 065
  9. TAMIFLU [Suspect]
     Active Substance: OSELTAMIVIR PHOSPHATE
     Indication: INFLUENZA
     Route: 048
     Dates: start: 20150216, end: 20150220
  10. REPAGLINIDE. [Concomitant]
     Active Substance: REPAGLINIDE
     Dosage: ARROW
     Route: 048
     Dates: start: 20150214
  11. BRICANYL [Concomitant]
     Active Substance: TERBUTALINE SULFATE
  12. NOVORAPID [Concomitant]
     Active Substance: INSULIN ASPART
  13. AUGMENTIN [Concomitant]
     Active Substance: AMOXICILLIN\CLAVULANATE POTASSIUM
     Indication: INFLUENZA
  14. SOLUPRED (FRANCE) [Concomitant]
     Active Substance: PREDNISOLONE
     Route: 065
  15. ADVAGRAF [Suspect]
     Active Substance: TACROLIMUS
     Indication: PRODUCT USED FOR UNKNOWN INDICATION
     Route: 048
     Dates: start: 201402
  16. XATRAL [Concomitant]
     Active Substance: ALFUZOSIN
     Route: 065
  17. LASILIX [Concomitant]
     Active Substance: FUROSEMIDE
     Route: 065
  18. LANTUS [Concomitant]
     Active Substance: INSULIN GLARGINE
  19. TAHOR [Concomitant]
     Active Substance: ATORVASTATIN CALCIUM

REACTIONS (3)
  - Hallucination, visual [Recovered/Resolved]
  - Confusional state [Recovered/Resolved]
  - Disorientation [Recovered/Resolved]

NARRATIVE: CASE EVENT DATE: 20150219
